FAERS Safety Report 17904499 (Version 1)
Quarter: 2020Q2

REPORT INFORMATION
  Report Type: Spontaneous
  Country: US (occurrence: US)
  Receive Date: 20200616
  Receipt Date: 20200616
  Transmission Date: 20200714
  Serious: No
  Sender: FDA-Public Use
  Company Number: US-ROCHE-2301091

PATIENT

DRUGS (17)
  1. TORADOL [Concomitant]
     Active Substance: KETOROLAC TROMETHAMINE
  2. DEPO-MEDROL [Concomitant]
     Active Substance: METHYLPREDNISOLONE ACETATE
  3. VIOXX [Concomitant]
     Active Substance: ROFECOXIB
  4. ACTEMRA [Suspect]
     Active Substance: TOCILIZUMAB
     Indication: PRODUCT USED FOR UNKNOWN INDICATION
     Route: 065
  5. CELEBREX [Concomitant]
     Active Substance: CELECOXIB
  6. BIAXIN [Concomitant]
     Active Substance: CLARITHROMYCIN
  7. REGLAN [Concomitant]
     Active Substance: METOCLOPRAMIDE HYDROCHLORIDE
  8. METHOTREXATE. [Concomitant]
     Active Substance: METHOTREXATE
  9. PREDNISONE. [Concomitant]
     Active Substance: PREDNISONE
  10. SOLU-MEDROL [Concomitant]
     Active Substance: METHYLPREDNISOLONE SODIUM SUCCINATE
  11. PLAQUENIL [Concomitant]
     Active Substance: HYDROXYCHLOROQUINE SULFATE
  12. ZORVOLEX [Concomitant]
     Active Substance: DICLOFENAC
  13. ARAVA [Concomitant]
     Active Substance: LEFLUNOMIDE
  14. TRAMADOL. [Concomitant]
     Active Substance: TRAMADOL
  15. RIFAMPIN. [Concomitant]
     Active Substance: RIFAMPIN
  16. ZYRTEC [Concomitant]
     Active Substance: CETIRIZINE HYDROCHLORIDE
  17. BEXTRA [Concomitant]
     Active Substance: VALDECOXIB

REACTIONS (1)
  - Drug hypersensitivity [Unknown]
